FAERS Safety Report 8966657 (Version 1)
Quarter: 2012Q4

REPORT INFORMATION
  Report Type: 
  Country: JP (occurrence: JP)
  Receive Date: 20121214
  Receipt Date: 20121214
  Transmission Date: 20130627
  Serious: Yes (Other)
  Sender: FDA-Public Use
  Company Number: JP-ASTRAZENECA-2012SE92213

PATIENT
  Age: 81 Year
  Sex: Female
  Weight: 37 kg

DRUGS (9)
  1. DIPRIVAN [Suspect]
     Indication: INDUCTION OF ANAESTHESIA
     Route: 042
  2. LAFUTIDINE [Concomitant]
     Route: 048
  3. REMIFENTANIL HYDROCHLORIDE [Concomitant]
     Indication: INDUCTION AND MAINTENANCE OF ANAESTHESIA
     Route: 042
  4. ROCURONIUM BROMIDE [Concomitant]
     Indication: INDUCTION OF ANAESTHESIA
     Route: 042
  5. SEVOFLURANE [Concomitant]
     Indication: MAINTENANCE OF ANAESTHESIA
     Route: 065
  6. EPHEDRIN [Concomitant]
     Indication: HYPOTENSION
     Dosage: 4 mg three times, 2 mg once
     Route: 065
  7. PHENYLEPHRINE HYDROCHLORIDE [Concomitant]
     Indication: HYPOTENSION
     Route: 065
  8. ATROPINE [Concomitant]
     Route: 065
  9. CEFTRIAXONE SODIUM HYDRATE [Concomitant]
     Route: 065

REACTIONS (1)
  - Idiopathic thrombocytopenic purpura [Recovered/Resolved]
